FAERS Safety Report 15394087 (Version 3)
Quarter: 2018Q4

REPORT INFORMATION
  Report Type: Report from Study
  Country: None (occurrence: US)
  Receive Date: 20180917
  Receipt Date: 20181012
  Transmission Date: 20190204
  Serious: Yes (Other)
  Sender: FDA-Public Use
  Company Number: US-ABBVIE-18K-163-2482711-00

PATIENT
  Age: 44 Year
  Sex: Female

DRUGS (1)
  1. HUMIRA [Suspect]
     Active Substance: ADALIMUMAB
     Indication: CROHN^S DISEASE
     Route: 058
     Dates: start: 20180615

REACTIONS (10)
  - Loss of consciousness [Recovered/Resolved]
  - Ehlers-Danlos syndrome [Not Recovered/Not Resolved]
  - Injection site rash [Recovering/Resolving]
  - Loss of consciousness [Unknown]
  - Fall [Not Recovered/Not Resolved]
  - Fall [Recovered/Resolved]
  - Injection site bruising [Unknown]
  - Joint dislocation [Not Recovered/Not Resolved]
  - Arrhythmia [Unknown]
  - Heart rate increased [Unknown]

NARRATIVE: CASE EVENT DATE: 2018
